FAERS Safety Report 17138770 (Version 1)
Quarter: 2019Q4

REPORT INFORMATION
  Report Type: Spontaneous
  Country: US (occurrence: US)
  Receive Date: 20191211
  Receipt Date: 20191211
  Transmission Date: 20200122
  Serious: No
  Sender: FDA-Public Use
  Company Number: US-UCBSA-2016017752

PATIENT
  Sex: Male

DRUGS (2)
  1. VIMPAT [Suspect]
     Active Substance: LACOSAMIDE
     Indication: OFF LABEL USE
  2. VIMPAT [Suspect]
     Active Substance: LACOSAMIDE
     Indication: DEMENTIA ALZHEIMER^S TYPE

REACTIONS (1)
  - No adverse event [Unknown]
